FAERS Safety Report 26203088 (Version 1)
Quarter: 2025Q4

REPORT INFORMATION
  Report Type: Spontaneous
  Country: CA (occurrence: CA)
  Receive Date: 20251226
  Receipt Date: 20251226
  Transmission Date: 20260118
  Serious: Yes (Death, Congenital Anomaly)
  Sender: ROCHE
  Company Number: CA-ROCHE-10000470391

PATIENT

DRUGS (14)
  1. ACTEMRA [Suspect]
     Active Substance: TOCILIZUMAB
     Indication: Product used for unknown indication
     Route: 064
  2. ACTEMRA [Suspect]
     Active Substance: TOCILIZUMAB
     Route: 064
  3. RITUXIMAB [Suspect]
     Active Substance: RITUXIMAB
     Indication: Product used for unknown indication
     Route: 064
  4. CAFFEINE CITRATE [Concomitant]
     Active Substance: CAFFEINE CITRATE
     Route: 064
  5. CALCIUM GLUCONATE [Concomitant]
     Active Substance: CALCIUM GLUCONATE
     Route: 064
  6. CODEINE [Concomitant]
     Active Substance: CODEINE
     Route: 064
  7. DICLOFENAC POTASSIUM [Concomitant]
     Active Substance: DICLOFENAC POTASSIUM
     Route: 064
  8. IBUPROFEN [Concomitant]
     Active Substance: IBUPROFEN
     Route: 064
  9. LISINOPRIL [Concomitant]
     Active Substance: LISINOPRIL
     Route: 064
  10. NAPROXEN [Concomitant]
     Active Substance: NAPROXEN
     Route: 064
  11. PANTOPRAZOLE [Concomitant]
     Active Substance: PANTOPRAZOLE
     Route: 064
  12. QUETIAPINE FUMARATE [Concomitant]
     Active Substance: QUETIAPINE FUMARATE
     Route: 064
  13. RAMIPRIL [Concomitant]
     Active Substance: RAMIPRIL
     Route: 064
  14. TOFACITINIB CITRATE [Concomitant]
     Active Substance: TOFACITINIB CITRATE
     Route: 064

REACTIONS (3)
  - Foetal exposure during pregnancy [Fatal]
  - Congenital anomaly [Fatal]
  - Death neonatal [Fatal]
